FAERS Safety Report 8352079-2 (Version None)
Quarter: 2012Q2

REPORT INFORMATION
  Report Type: 
  Country: None (occurrence: None)
  Receive Date: 20120511
  Receipt Date: 20120503
  Transmission Date: 20120825
  Serious: Yes (Hospitalization, Other)
  Sender: FDA-Public Use
  Company Number: US-BAYER-2011-111064

PATIENT
  Age: 32 Year
  Sex: Female

DRUGS (5)
  1. HYDROCHLOROTHIAZIDE [Concomitant]
     Indication: BLOOD PRESSURE ABNORMAL
     Dosage: 25 MG, UNK
     Dates: start: 20090101
  2. NAPROXEN [Concomitant]
  3. YASMIN [Suspect]
     Indication: MENSTRUATION IRREGULAR
     Dosage: UNK
     Dates: start: 20050701, end: 20091001
  4. VITAMIN B-12 [Concomitant]
     Dosage: 1 , QD
  5. TYLENOL (CAPLET) [Concomitant]
     Dosage: UNK UNK, PRN

REACTIONS (8)
  - BILIARY DYSKINESIA [None]
  - ANXIETY [None]
  - INJURY [None]
  - GENERAL PHYSICAL HEALTH DETERIORATION [None]
  - SCAR [None]
  - GALLBLADDER INJURY [None]
  - PAIN [None]
  - EMOTIONAL DISTRESS [None]
